FAERS Safety Report 4988776-6 (Version None)
Quarter: 2006Q2

REPORT INFORMATION
  Report Type: 
  Country: None (occurrence: None)
  Receive Date: 20060502
  Receipt Date: 20050321
  Transmission Date: 20061013
  Serious: Yes (Hospitalization)
  Sender: FDA-Public Use
  Company Number: US-MERCK-0503USA03658

PATIENT
  Age: 78 Year
  Sex: Male
  Weight: 109 kg

DRUGS (1)
  1. VIOXX [Suspect]
     Indication: BACK PAIN
     Route: 048
     Dates: start: 20030101, end: 20040930

REACTIONS (9)
  - ACUTE MYOCARDIAL INFARCTION [None]
  - ATELECTASIS [None]
  - CARDIAC DISORDER [None]
  - CARDIOMEGALY [None]
  - CORONARY ARTERY DISEASE [None]
  - DIABETES MELLITUS [None]
  - FLANK PAIN [None]
  - HYPERTENSION [None]
  - PULMONARY OEDEMA [None]
